FAERS Safety Report 26151524 (Version 1)
Quarter: 2025Q4

REPORT INFORMATION
  Report Type: Report from Study
  Country: EU (occurrence: EU)
  Receive Date: 20251212
  Receipt Date: 20251212
  Transmission Date: 20260117
  Serious: Yes (Hospitalization)
  Sender: ABBVIE
  Company Number: EU-ABBVIE-6586423

PATIENT
  Age: 72 Year
  Sex: Female

DRUGS (1)
  1. FOSCARBIDOPA\FOSLEVODOPA [Suspect]
     Active Substance: FOSCARBIDOPA\FOSLEVODOPA
     Indication: Parkinson^s disease
     Dosage: CRN:0.21ML/H, CR:0.27ML/H, CRH:0.29ML/H, ED: 0.15ML
     Route: 058
     Dates: start: 20251121, end: 20251122

REACTIONS (1)
  - Circulatory collapse [Unknown]

NARRATIVE: CASE EVENT DATE: 20251101
